FAERS Safety Report 21568064 (Version 1)
Quarter: 2022Q4

REPORT INFORMATION
  Report Type: Spontaneous
  Country: US (occurrence: None)
  Receive Date: 20221107
  Receipt Date: 20221107
  Transmission Date: 20230113
  Serious: Yes (Death, Life-Threatening, Hospitalization, Other)
  Sender: FDA-Public Use
  Company Number: None

PATIENT
  Age: 73 Year
  Sex: Male
  Weight: 81.65 kg

DRUGS (3)
  1. AMOXICILLIN\CLAVULANATE POTASSIUM [Suspect]
     Active Substance: AMOXICILLIN\CLAVULANATE POTASSIUM
     Indication: Infection
     Dosage: 1 TAB BID PO?
     Route: 048
     Dates: start: 20220622, end: 20220704
  2. DIVALPROEX SODIUM [Suspect]
     Active Substance: DIVALPROEX SODIUM
     Indication: Post-traumatic stress disorder
     Dosage: 1 TAB HS PO?
     Route: 048
     Dates: start: 20220622, end: 20220627
  3. ATORVASTATIN [Suspect]
     Active Substance: ATORVASTATIN

REACTIONS (13)
  - Tooth infection [None]
  - Liver function test increased [None]
  - Blood bilirubin increased [None]
  - Blood alkaline phosphatase increased [None]
  - Aspartate aminotransferase increased [None]
  - Alanine aminotransferase increased [None]
  - Pruritus [None]
  - Erythema [None]
  - Rash [None]
  - Hepatic steatosis [None]
  - Chronic hepatic failure [None]
  - Urticaria [None]
  - Hepatic failure [None]

NARRATIVE: CASE EVENT DATE: 20220707
